FAERS Safety Report 8956499 (Version 2)
Quarter: 2013Q2

REPORT INFORMATION
  Report Type: Spontaneous
  Country: IT (occurrence: IT)
  Receive Date: 20121210
  Receipt Date: 20130520
  Transmission Date: 20140414
  Serious: Yes (Other)
  Sender: FDA-Public Use
  Company Number: IT-SANOFI-AVENTIS-2012SA088940

PATIENT
  Age: 64 Year
  Sex: Male

DRUGS (4)
  1. MITTOVAL [Suspect]
     Indication: BENIGN PROSTATIC HYPERPLASIA
     Route: 048
     Dates: start: 20121031, end: 20121031
  2. OMEPRAZOLE [Concomitant]
  3. NEBIVOLOL [Concomitant]
  4. IPERTEN [Concomitant]

REACTIONS (4)
  - Hypoacusis [Recovered/Resolved]
  - Hyperhidrosis [Recovered/Resolved]
  - Pallor [Recovered/Resolved]
  - Syncope [Recovered/Resolved]
